FAERS Safety Report 8986532 (Version 3)
Quarter: 2013Q3

REPORT INFORMATION
  Report Type: Spontaneous
  Country: US (occurrence: US)
  Receive Date: 20121227
  Receipt Date: 20130927
  Transmission Date: 20140515
  Serious: Yes (Hospitalization, Disabling, Other)
  Sender: FDA-Public Use
  Company Number: US-ASTRAZENECA-2012SE94583

PATIENT
  Age: 55 Year
  Sex: Female

DRUGS (38)
  1. NEXIUM [Suspect]
     Indication: GASTROOESOPHAGEAL REFLUX DISEASE
     Route: 048
     Dates: start: 1997
  2. NEXIUM [Suspect]
     Indication: GASTROOESOPHAGEAL REFLUX DISEASE
     Dosage: 40 TO 80 MG
     Route: 048
     Dates: start: 1999
  3. NEXIUM [Suspect]
     Indication: GASTROOESOPHAGEAL REFLUX DISEASE
     Route: 048
     Dates: start: 1999
  4. NEXIUM [Suspect]
     Indication: GASTROOESOPHAGEAL REFLUX DISEASE
     Route: 048
     Dates: start: 20090813
  5. NEXIUM [Suspect]
     Indication: GASTROOESOPHAGEAL REFLUX DISEASE
     Route: 048
     Dates: start: 20120127
  6. PREVACID OTC [Suspect]
     Indication: GASTROOESOPHAGEAL REFLUX DISEASE
     Dosage: PRN
     Route: 065
     Dates: start: 1997
  7. PREVACID OTC [Suspect]
     Indication: GASTROOESOPHAGEAL REFLUX DISEASE
     Dosage: THREE TIMES A DAY
     Route: 065
  8. HYDROCOD BIT/APAP/LORTAB [Concomitant]
     Indication: PAIN
     Dosage: 10/500 EVERY 6 HOURS AS NEEDED
     Route: 048
     Dates: start: 20090724
  9. TRAZADONE [Concomitant]
     Route: 048
     Dates: start: 20091009
  10. PAROXETINE [Concomitant]
     Route: 048
     Dates: start: 20091009
  11. METFORMIN HCL [Concomitant]
     Route: 048
     Dates: start: 20091009
  12. LIPITOR [Concomitant]
     Route: 048
     Dates: start: 20091009
  13. MICARDIS [Concomitant]
     Route: 048
     Dates: start: 20091009
  14. FUROSEMIDE [Concomitant]
     Route: 048
     Dates: start: 20091019
  15. METHOCARBAMOL [Concomitant]
     Route: 048
     Dates: start: 20091019
  16. NABUMETONE [Concomitant]
     Route: 048
     Dates: start: 20091009
  17. TRAMADOL [Concomitant]
     Indication: PAIN
     Dates: start: 20100811
  18. ASPIRIN [Concomitant]
     Dates: start: 20100811
  19. FLEXERIL [Concomitant]
     Dates: start: 20100811
  20. AVALIDE [Concomitant]
     Dosage: 12.5 MG TO 150 MG 1 TAB ONCE A DAY
     Dates: start: 20100811
  21. MICARDIS HCT [Concomitant]
     Dosage: 12.5 MG TO 40 MG 1 TAB ONCE A DAY
     Dates: start: 20100811
  22. MOBIC [Concomitant]
     Dates: start: 20100811
  23. TYLENOL [Concomitant]
     Indication: ARTHRITIS
     Dates: start: 20100811
  24. ZANTAC [Concomitant]
     Dates: start: 198712
  25. TAGAMET [Concomitant]
     Dates: start: 198712
  26. PEPCID [Concomitant]
     Dates: start: 198712
  27. TUMS [Concomitant]
     Dosage: PRN
  28. ALKA-SELTZER [Concomitant]
     Dosage: PRN
  29. MILK OF MAGNESIA [Concomitant]
     Dosage: PRN
  30. GAVISCON [Concomitant]
     Dosage: PRN
  31. PEPTO BISMOL [Concomitant]
     Dosage: PRN
  32. ROLAIDS [Concomitant]
     Dosage: PRN
  33. CYMBALTA [Concomitant]
     Indication: PAIN
     Route: 048
     Dates: start: 20120426
  34. NEURONTIN [Concomitant]
     Indication: PAIN
     Route: 048
  35. ZOCOR [Concomitant]
  36. BONIVA [Concomitant]
     Route: 048
     Dates: start: 20100819
  37. PREDNISONE [Concomitant]
     Route: 048
     Dates: start: 20100412
  38. MYLANTA [Concomitant]
     Dosage: PRN

REACTIONS (18)
  - Lumbar vertebral fracture [Unknown]
  - Myocardial infarction [Unknown]
  - Lumbar radiculopathy [Unknown]
  - Back pain [Unknown]
  - Fall [Unknown]
  - Musculoskeletal discomfort [Unknown]
  - Osteoporosis [Unknown]
  - Bone density decreased [Unknown]
  - Multiple fractures [Unknown]
  - Spinal pain [Unknown]
  - Arthritis [Unknown]
  - Bone disorder [Unknown]
  - Diabetes mellitus [Unknown]
  - Osteopenia [Unknown]
  - Anxiety [Unknown]
  - Pelvic pain [Unknown]
  - Arthralgia [Unknown]
  - Depression [Unknown]
